FAERS Safety Report 25564619 (Version 1)
Quarter: 2025Q3

REPORT INFORMATION
  Report Type: Spontaneous
  Country: EU (occurrence: EU)
  Receive Date: 20250716
  Receipt Date: 20250716
  Transmission Date: 20251020
  Serious: Yes (Hospitalization)
  Sender: MYLAN
  Company Number: EU-MYLANLABS-2025M1059160

PATIENT
  Age: 40 Year
  Sex: Female

DRUGS (20)
  1. VENLAFAXINE [Suspect]
     Active Substance: VENLAFAXINE HYDROCHLORIDE
     Indication: Bipolar I disorder
  2. VENLAFAXINE [Suspect]
     Active Substance: VENLAFAXINE HYDROCHLORIDE
     Route: 065
  3. VENLAFAXINE [Suspect]
     Active Substance: VENLAFAXINE HYDROCHLORIDE
     Route: 065
  4. VENLAFAXINE [Suspect]
     Active Substance: VENLAFAXINE HYDROCHLORIDE
  5. TRAZODONE [Suspect]
     Active Substance: TRAZODONE HYDROCHLORIDE
     Indication: Bipolar I disorder
  6. TRAZODONE [Suspect]
     Active Substance: TRAZODONE HYDROCHLORIDE
     Route: 065
  7. TRAZODONE [Suspect]
     Active Substance: TRAZODONE HYDROCHLORIDE
     Route: 065
  8. TRAZODONE [Suspect]
     Active Substance: TRAZODONE HYDROCHLORIDE
  9. FLUOXETINE [Suspect]
     Active Substance: FLUOXETINE HYDROCHLORIDE
     Indication: Bipolar I disorder
  10. FLUOXETINE [Suspect]
     Active Substance: FLUOXETINE HYDROCHLORIDE
     Route: 065
  11. FLUOXETINE [Suspect]
     Active Substance: FLUOXETINE HYDROCHLORIDE
     Route: 065
  12. FLUOXETINE [Suspect]
     Active Substance: FLUOXETINE HYDROCHLORIDE
  13. LAMOTRIGINE [Concomitant]
     Active Substance: LAMOTRIGINE
     Indication: Temporal lobe epilepsy
  14. LAMOTRIGINE [Concomitant]
     Active Substance: LAMOTRIGINE
     Indication: Partial seizures
     Route: 065
  15. LAMOTRIGINE [Concomitant]
     Active Substance: LAMOTRIGINE
     Route: 065
  16. LAMOTRIGINE [Concomitant]
     Active Substance: LAMOTRIGINE
  17. VALPROATE [Concomitant]
     Active Substance: VALPROIC ACID
     Indication: Temporal lobe epilepsy
  18. VALPROATE [Concomitant]
     Active Substance: VALPROIC ACID
     Indication: Partial seizures
     Route: 065
  19. VALPROATE [Concomitant]
     Active Substance: VALPROIC ACID
     Route: 065
  20. VALPROATE [Concomitant]
     Active Substance: VALPROIC ACID

REACTIONS (1)
  - Drug ineffective [Unknown]
